FAERS Safety Report 19746329 (Version 1)
Quarter: 2021Q3

REPORT INFORMATION
  Report Type: Spontaneous
  Country: DE (occurrence: DE)
  Receive Date: 20210825
  Receipt Date: 20210825
  Transmission Date: 20211014
  Serious: Yes (Hospitalization)
  Sender: FDA-Public Use
  Company Number: DE-MYLANLABS-2021M1054660

PATIENT
  Age: 57 Year
  Sex: Male
  Weight: 130 kg

DRUGS (4)
  1. RAMIPRIL/HYDROCHLOROTHIAZIDE [Concomitant]
     Active Substance: HYDROCHLOROTHIAZIDE\RAMIPRIL
     Dosage: 25|5 MG, 1?0?0?0, TABLETTEN
  2. PREDNISOLONE. [Suspect]
     Active Substance: PREDNISOLONE
     Indication: PRODUCT USED FOR UNKNOWN INDICATION
     Dosage: UNK (10 MG, 1?0?0?0, TABLETTEN)
  3. COLECALCIFEROL [Concomitant]
     Active Substance: CHOLECALCIFEROL
     Dosage: 20000 IU/EVERY 2 WEEKS, 1X SATURDAYS, CAPSULES
  4. RAMIPRIL. [Concomitant]
     Active Substance: RAMIPRIL
     Dosage: 5 MG, 1?0?0?0, TABLETTEN

REACTIONS (4)
  - Asthenia [Unknown]
  - Dyspnoea exertional [Unknown]
  - Dizziness [Unknown]
  - Atrial fibrillation [Unknown]
